FAERS Safety Report 8416591-X (Version None)
Quarter: 2012Q2

REPORT INFORMATION
  Report Type: 
  Country: None (occurrence: None)
  Receive Date: 20120323
  Receipt Date: 20110516
  Transmission Date: 20120825
  Serious: Yes (Hospitalization)
  Sender: FDA-Public Use
  Company Number: 163-21880-11021938

PATIENT
  Age: 78 Year
  Sex: Female
  Weight: 99.79 kg

DRUGS (14)
  1. REVLIMID [Suspect]
     Indication: MULTIPLE MYELOMA
     Dosage: 25 MG, 1 IN 1 D, PO
     Route: 048
     Dates: start: 20110120, end: 20110201
  2. COLCHICINE [Concomitant]
  3. LASIX [Concomitant]
  4. DECADRON [Concomitant]
  5. GLIPIZIDE [Concomitant]
  6. AMBIEN [Concomitant]
  7. ZOMETA [Concomitant]
  8. SPIRONOLACTONE [Concomitant]
  9. AMLODIPINE [Concomitant]
  10. COUMADIN [Concomitant]
  11. POTASSIUM CHLORIDE [Concomitant]
  12. PREVACID [Concomitant]
  13. VICODIN [Concomitant]
  14. LISINOPRIL [Concomitant]

REACTIONS (3)
  - NASOPHARYNGITIS [None]
  - GOUT [None]
  - CHEST PAIN [None]
